FAERS Safety Report 4292063-1 (Version None)
Quarter: 2004Q1

REPORT INFORMATION
  Report Type: 
  Country: None (occurrence: None)
  Receive Date: 20040211
  Receipt Date: 20020902
  Transmission Date: 20041129
  Serious: Yes (Death)
  Sender: FDA-Public Use
  Company Number: WAES 0209DEU00029

PATIENT
  Age: 25 Year
  Sex: Female

DRUGS (1)
  1. PROPECIA [Suspect]
     Dates: start: 20020828, end: 20020828

REACTIONS (6)
  - ABORTED PREGNANCY [None]
  - COMPLICATIONS OF MATERNAL EXPOSURE TO THERAPEUTIC DRUGS [None]
  - DRUG EXPOSURE DURING PREGNANCY [None]
  - EYE REDNESS [None]
  - MEDICATION ERROR [None]
  - PREGNANCY [None]
